FAERS Safety Report 23269253 (Version 3)
Quarter: 2024Q1

REPORT INFORMATION
  Report Type: Spontaneous
  Country: JP (occurrence: JP)
  Receive Date: 20231207
  Receipt Date: 20240201
  Transmission Date: 20240410
  Serious: Yes (Hospitalization)
  Sender: FDA-Public Use
  Company Number: JP-BRISTOL-MYERS SQUIBB COMPANY-2023-164942

PATIENT
  Age: 76 Year
  Sex: Female

DRUGS (12)
  1. YERVOY [Suspect]
     Active Substance: IPILIMUMAB
     Indication: Metastatic renal cell carcinoma
     Dosage: 1ST COURSE
     Dates: start: 20230921
  2. YERVOY [Suspect]
     Active Substance: IPILIMUMAB
     Dosage: 3RD COURSE
     Dates: start: 20231102
  3. YERVOY [Suspect]
     Active Substance: IPILIMUMAB
     Dosage: 4 COURSE
     Dates: start: 20231130
  4. OPDIVO [Suspect]
     Active Substance: NIVOLUMAB
     Indication: Metastatic renal cell carcinoma
     Dosage: 1ST COURSE
     Route: 041
     Dates: start: 20230921
  5. OPDIVO [Suspect]
     Active Substance: NIVOLUMAB
     Dosage: 3RD COURSE
     Route: 041
     Dates: start: 20231102
  6. OPDIVO [Suspect]
     Active Substance: NIVOLUMAB
     Dosage: 4TH COURSE
     Route: 041
     Dates: start: 20231130
  7. CANDESARTAN [Concomitant]
     Active Substance: CANDESARTAN
     Indication: Product used for unknown indication
  8. FAMOTIDINE OD ME [Concomitant]
     Indication: Product used for unknown indication
     Dosage: 2 DOSAGE FORM
  9. PRAVASTATIN SODIUM [Concomitant]
     Active Substance: PRAVASTATIN SODIUM
     Indication: Product used for unknown indication
  10. MAGNESIUM OXIDE [Concomitant]
     Active Substance: MAGNESIUM OXIDE
     Indication: Product used for unknown indication
     Dosage: TWICE?2 DOSAGE FORM
  11. PANTETHINE [Concomitant]
     Active Substance: PANTETHINE
     Indication: Product used for unknown indication
     Dosage: TWICE?2 DOSAGE FORM
  12. BISOPROLOL FUMARATE [Concomitant]
     Active Substance: BISOPROLOL FUMARATE
     Indication: Product used for unknown indication
     Dosage: ONCE?2 DOSAGE FORM

REACTIONS (2)
  - Diarrhoea [Recovered/Resolved]
  - Hypopituitarism [Recovered/Resolved]

NARRATIVE: CASE EVENT DATE: 20231109
